FAERS Safety Report 9417231 (Version 1)
Quarter: 2013Q3

REPORT INFORMATION
  Report Type: Spontaneous
  Country: US (occurrence: US)
  Receive Date: 20130724
  Receipt Date: 20130724
  Transmission Date: 20140515
  Serious: No
  Sender: FDA-Public Use
  Company Number: US-BAUSCH-BL-2013-003065

PATIENT
  Age: 30 Year
  Sex: Male
  Weight: 118.04 kg

DRUGS (1)
  1. OPCON-A [Suspect]
     Indication: EYE ALLERGY
     Dosage: 1 DROP IN EACH EYE, TWO TIMES
     Route: 047
     Dates: start: 20130503, end: 20130510

REACTIONS (1)
  - Mydriasis [Recovered/Resolved]
